FAERS Safety Report 5900819-1 (Version None)
Quarter: 2008Q3

REPORT INFORMATION
  Report Type: 
  Country: None (occurrence: None)
  Receive Date: 20080929
  Receipt Date: 20080916
  Transmission Date: 20090109
  Serious: Yes (Death, Hospitalization)
  Sender: FDA-Public Use
  Company Number: ES-JNJFOC-20080903608

PATIENT
  Age: 48 Year
  Sex: Female

DRUGS (7)
  1. REMICADE [Suspect]
     Dosage: 4 INFUSION, 8 WEEKS LATER
     Route: 042
  2. REMICADE [Suspect]
     Dosage: AT DAY 45
     Route: 042
  3. REMICADE [Suspect]
     Dosage: AT DAY 15
     Route: 042
  4. REMICADE [Suspect]
     Indication: CHOROIDITIS
     Dosage: AT DAY 0
     Route: 042
  5. AZATHIOPRINE [Concomitant]
     Indication: CHOROIDITIS
  6. PREDNISONE TAB [Concomitant]
  7. PREDNISONE TAB [Concomitant]
     Indication: CHOROIDITIS

REACTIONS (2)
  - DISSEMINATED TUBERCULOSIS [None]
  - INTESTINAL PERFORATION [None]
